FAERS Safety Report 12864413 (Version 1)
Quarter: 2016Q4

REPORT INFORMATION
  Report Type: Other
  Country: AU (occurrence: AU)
  Receive Date: 20161020
  Receipt Date: 20161020
  Transmission Date: 20170207
  Serious: Yes (Life-Threatening, Hospitalization)
  Sender: FDA-Public Use
  Company Number: AU-DEXPHARM-20162058

PATIENT
  Age: 43 Year
  Sex: Male

DRUGS (1)
  1. DICLOFENAC [Suspect]
     Active Substance: DICLOFENAC
     Indication: BACK PAIN
     Dosage: 56 50MG DICLOFENAC TABLETS PER WEEK

REACTIONS (2)
  - Overdose [Recovered/Resolved]
  - Renal tubular acidosis [Recovered/Resolved]
